FAERS Safety Report 4365268-9 (Version None)
Quarter: 2004Q2

REPORT INFORMATION
  Report Type: 
  Country: None (occurrence: None)
  Receive Date: 20040521
  Receipt Date: 20040510
  Transmission Date: 20050107
  Serious: Yes (Life-Threatening)
  Sender: FDA-Public Use
  Company Number: J200402156

PATIENT
  Age: 74 Year
  Sex: Male

DRUGS (8)
  1. ZOLPIDEM TARTRATE [Suspect]
     Indication: INSOMNIA
     Dosage: 5MG/10MG PO
     Route: 048
     Dates: end: 20040505
  2. ZOLPIDEM TARTRATE [Suspect]
     Indication: INSOMNIA
     Dosage: 5MG/10MG PO
     Route: 048
     Dates: start: 20040506, end: 20040508
  3. CONIEL (BENIDIPINE HYDROCHLORIDE) [Concomitant]
  4. THEOLONG (THEOPHYLLINE) [Concomitant]
  5. DISOPYRAMIDE [Concomitant]
  6. SELBEX (TEPRENONE) [Concomitant]
  7. EXCELASE (SENACTASE COMBINED DRUG) [Concomitant]
  8. POLARAMIN (CHLORPHENIRAMINE MALEATE) [Concomitant]

REACTIONS (13)
  - ANXIETY [None]
  - ARRHYTHMIA [None]
  - BLOOD CREATINE PHOSPHOKINASE INCREASED [None]
  - DRUG INEFFECTIVE [None]
  - HYPERTHERMIA [None]
  - INCONTINENCE [None]
  - MENTAL STATUS CHANGES [None]
  - METABOLIC ACIDOSIS [None]
  - MUSCLE RIGIDITY [None]
  - MYOGLOBINURIA [None]
  - NEUROLEPTIC MALIGNANT SYNDROME [None]
  - RHABDOMYOLYSIS [None]
  - WHITE BLOOD CELL COUNT INCREASED [None]
